FAERS Safety Report 7171539-3 (Version None)
Quarter: 2010Q4

REPORT INFORMATION
  Report Type: 
  Country: None (occurrence: None)
  Receive Date: 20101217
  Receipt Date: 20101210
  Transmission Date: 20110411
  Serious: Yes (Death, Hospitalization, Other)
  Sender: FDA-Public Use
  Company Number: US-AMGEN GMBH-QUU416841

PATIENT

DRUGS (9)
  1. NPLATE [Suspect]
     Indication: IDIOPATHIC THROMBOCYTOPENIC PURPURA
     Dosage: 4 A?G/KG, QWK
     Route: 058
     Dates: start: 20091221, end: 20100512
  2. NPLATE [Suspect]
     Dates: start: 20091221, end: 20100512
  3. CORTICOSTEROID NOS [Concomitant]
     Dosage: UNK UNK, UNK
     Dates: start: 20081220, end: 20090128
  4. IMMUNOGLOBULINS [Concomitant]
     Dosage: UNK UNK, UNK
     Dates: start: 20091203, end: 20091204
  5. LACTULOSE [Concomitant]
     Indication: CHRONIC HEPATIC FAILURE
  6. SPIRONOLACTONE [Concomitant]
     Indication: CHRONIC HEPATIC FAILURE
  7. OXYCODONE [Concomitant]
     Indication: CHRONIC HEPATIC FAILURE
  8. METOPROLOL [Concomitant]
     Indication: CHRONIC HEPATIC FAILURE
  9. SULFAMETHOXAZOLE AND TRIMETHOPRIM [Concomitant]
     Indication: CHRONIC HEPATIC FAILURE

REACTIONS (14)
  - ASCITES [None]
  - BLOOD CULTURE POSITIVE [None]
  - CHRONIC HEPATIC FAILURE [None]
  - CLOSTRIDIUM BACTERAEMIA [None]
  - CONFUSIONAL STATE [None]
  - DRUG INEFFECTIVE [None]
  - HEPATIC ENCEPHALOPATHY [None]
  - HEPATIC FAILURE [None]
  - KLEBSIELLA TEST POSITIVE [None]
  - PERITONEAL INFECTION [None]
  - PLATELET COUNT DECREASED [None]
  - PLEURAL EFFUSION [None]
  - PYREXIA [None]
  - SMALL INTESTINAL OBSTRUCTION [None]
